FAERS Safety Report 12548631 (Version 1)
Quarter: 2016Q3

REPORT INFORMATION
  Report Type: Spontaneous
  Country: US (occurrence: US)
  Receive Date: 20160712
  Receipt Date: 20160712
  Transmission Date: 20161109
  Serious: Yes (Other)
  Sender: FDA-Public Use
  Company Number: US-TEVA-607136USA

PATIENT
  Sex: Female

DRUGS (3)
  1. LAMOTRIGINE. [Suspect]
     Active Substance: LAMOTRIGINE
     Dosage: 300 MILLIGRAM DAILY;
  2. KEPPRA [Suspect]
     Active Substance: LEVETIRACETAM
     Dosage: 4000 MILLIGRAM DAILY;
     Route: 065
  3. EPILIM [Suspect]
     Active Substance: VALPROATE SODIUM
     Dosage: 1800 MILLIGRAM DAILY;
     Route: 065

REACTIONS (2)
  - Fatigue [Unknown]
  - Seizure [Unknown]
